FAERS Safety Report 4681531-6 (Version None)
Quarter: 2005Q2

REPORT INFORMATION
  Report Type: 
  Country: None (occurrence: None)
  Receive Date: 20050602
  Receipt Date: 20050517
  Transmission Date: 20051028
  Serious: Yes (Other)
  Sender: FDA-Public Use
  Company Number: 2005US000620

PATIENT
  Age: 51 Year
  Sex: Male

DRUGS (4)
  1. PROGRAF [Suspect]
     Indication: PROPHYLAXIS AGAINST TRANSPLANT REJECTION
  2. HYDROXYCHLOROQUINE SULFATE [Suspect]
     Dosage: 400 MG BID
     Dates: start: 20011001
  3. MYCOPHENOLATE MOFETIL (MYCOPHENOLATE MOFETIL) [Concomitant]
  4. PREDNISONE [Concomitant]

REACTIONS (3)
  - GRAFT VERSUS HOST DISEASE [None]
  - MYOPATHY TOXIC [None]
  - NECROSIS [None]
